FAERS Safety Report 17647622 (Version 1)
Quarter: 2020Q2

REPORT INFORMATION
  Report Type: Spontaneous
  Country: US (occurrence: US)
  Receive Date: 20200408
  Receipt Date: 20200408
  Transmission Date: 20200713
  Serious: Yes (Hospitalization)
  Sender: FDA-Public Use
  Company Number: US-SCIEGEN-2020SCILIT00079

PATIENT
  Age: 11 Year
  Sex: Male

DRUGS (8)
  1. QUETIAPINE. [Suspect]
     Active Substance: QUETIAPINE
     Route: 048
  2. MINERAL OIL. [Interacting]
     Active Substance: MINERAL OIL
     Indication: BEZOAR
     Dosage: 1 TABLE SPOON
     Route: 065
  3. BISACODYL. [Interacting]
     Active Substance: BISACODYL
     Indication: BEZOAR
     Route: 065
  4. QUETIAPINE. [Suspect]
     Active Substance: QUETIAPINE
     Indication: PRODUCT USED FOR UNKNOWN INDICATION
     Route: 048
  5. POLYETHYLENE GLYCOL [Interacting]
     Active Substance: POLYETHYLENE GLYCOLS
     Indication: FAECES SOFT
     Route: 065
  6. LISDEXAMFETAMINE [Suspect]
     Active Substance: LISDEXAMFETAMINE
     Indication: PRODUCT USED FOR UNKNOWN INDICATION
     Route: 065
  7. MELATONIN [Concomitant]
     Active Substance: MELATONIN
     Indication: PRODUCT USED FOR UNKNOWN INDICATION
     Route: 065
  8. ENEMA (SODIUM PHOSPHATE, DIBASIC\SODIUM PHOSPHATE, MONOBASIC) [Interacting]
     Active Substance: SODIUM PHOSPHATE, DIBASIC\SODIUM PHOSPHATE, MONOBASIC
     Indication: BEZOAR
     Route: 065

REACTIONS (1)
  - Bezoar [Unknown]
